FAERS Safety Report 4349645-8 (Version None)
Quarter: 2004Q2

REPORT INFORMATION
  Report Type: 
  Country: None (occurrence: None)
  Receive Date: 20040427
  Receipt Date: 20031029
  Transmission Date: 20050107
  Serious: No
  Sender: FDA-Public Use
  Company Number: 000686

PATIENT
  Age: 72 Year
  Sex: Female

DRUGS (1)
  1. ZEVALIN [Suspect]
     Indication: NON-HODGKIN'S LYMPHOMA
     Dosage: SEE IMAGE
     Route: 042
     Dates: start: 20031022, end: 20031022

REACTIONS (1)
  - THROMBOCYTOPENIA [None]
